FAERS Safety Report 20820095 (Version 11)
Quarter: 2024Q4

REPORT INFORMATION
  Report Type: Report from Study
  Country: DE (occurrence: DE)
  Receive Date: 20220512
  Receipt Date: 20241007
  Transmission Date: 20250115
  Serious: Yes (Hospitalization)
  Sender: NOVARTIS
  Company Number: DE-NOVARTISPH-NVSC2022DE108377

PATIENT
  Sex: Female

DRUGS (1)
  1. MAYZENT [Suspect]
     Active Substance: SIPONIMOD
     Indication: Secondary progressive multiple sclerosis
     Dosage: 2 MG, QD (INCLUDING DOSAGE-TITRATION)
     Route: 048
     Dates: start: 20220126

REACTIONS (8)
  - Transient ischaemic attack [Recovered/Resolved]
  - Hypertensive crisis [Recovered/Resolved]
  - Speech disorder [Recovered/Resolved]
  - Hypercholesterolaemia [Not Recovered/Not Resolved]
  - Hypertension [Not Recovered/Not Resolved]
  - Lipase increased [Not Recovered/Not Resolved]
  - Urinary tract infection [Not Recovered/Not Resolved]
  - Nail disorder [Recovered/Resolved]

NARRATIVE: CASE EVENT DATE: 20220421
